FAERS Safety Report 24131557 (Version 1)
Quarter: 2024Q3

REPORT INFORMATION
  Report Type: Spontaneous
  Country: CN (occurrence: CN)
  Receive Date: 20240724
  Receipt Date: 20240724
  Transmission Date: 20241016
  Serious: Yes (Other)
  Sender: ABBVIE
  Company Number: CN-PFIZER INC-PV202400094481

PATIENT
  Age: 60 Year
  Sex: Female

DRUGS (2)
  1. AVIBACTAM SODIUM [Suspect]
     Active Substance: AVIBACTAM SODIUM
     Indication: Pneumonia
     Route: 065
  2. AVIBACTAM SODIUM [Suspect]
     Active Substance: AVIBACTAM SODIUM
     Indication: Pneumonia
     Dosage: TIME INTERVAL: 0.33333333 DAYS: 2.5 G, 3X/DAY
     Route: 065
     Dates: start: 20240713, end: 20240714

REACTIONS (3)
  - Rash erythematous [Recovering/Resolving]
  - Drug hypersensitivity [Recovering/Resolving]
  - Rash [Recovering/Resolving]

NARRATIVE: CASE EVENT DATE: 20240714
